FAERS Safety Report 17194308 (Version 1)
Quarter: 2019Q4

REPORT INFORMATION
  Report Type: Spontaneous
  Country: US (occurrence: US)
  Receive Date: 20191202
  Receipt Date: 20191202
  Transmission Date: 20200122
  Serious: No
  Sender: FDA-Public Use
  Company Number: None

PATIENT
  Age: 36 Year
  Sex: Male
  Weight: 72.57 kg

DRUGS (1)
  1. TREMFYA [Suspect]
     Active Substance: GUSELKUMAB
     Indication: PSORIASIS
     Route: 058
     Dates: start: 20190903, end: 20191021

REACTIONS (4)
  - Dysaesthesia [None]
  - Dermatitis [None]
  - Headache [None]
  - Skin warm [None]

NARRATIVE: CASE EVENT DATE: 20190903
